FAERS Safety Report 4894401-5 (Version None)
Quarter: 2006Q1

REPORT INFORMATION
  Report Type: 
  Country: None (occurrence: None)
  Receive Date: 20060127
  Receipt Date: 20060117
  Transmission Date: 20060701
  Serious: Yes (Death, Other)
  Sender: FDA-Public Use
  Company Number: GB-BRISTOL-MYERS SQUIBB COMPANY-13249362

PATIENT
  Age: 50 Year
  Sex: Male
  Weight: 70 kg

DRUGS (7)
  1. DIDANOSINE [Suspect]
     Indication: HIV INFECTION
     Route: 048
     Dates: start: 20041116, end: 20051227
  2. VIREAD [Suspect]
     Indication: HIV INFECTION
     Route: 048
     Dates: start: 20041116, end: 20051227
  3. DICLOFENAC [Suspect]
     Indication: NEURALGIA
     Route: 048
     Dates: start: 20051219, end: 20051226
  4. ZIDOVUDINE [Concomitant]
     Indication: HIV INFECTION
     Route: 048
     Dates: start: 20051212, end: 20051227
  5. KALETRA [Concomitant]
     Indication: HIV INFECTION
     Route: 048
     Dates: start: 20041116, end: 20051227
  6. MS CONTIN [Concomitant]
     Indication: NEURALGIA
     Route: 048
     Dates: start: 20051115, end: 20051227
  7. GABAPENTIN [Concomitant]
     Indication: NEURALGIA
     Route: 048
     Dates: start: 20051101, end: 20051227

REACTIONS (4)
  - LACTIC ACIDOSIS [None]
  - POST HERPETIC NEURALGIA [None]
  - RENAL FAILURE ACUTE [None]
  - VOMITING [None]
